FAERS Safety Report 7611895-2 (Version None)
Quarter: 2011Q3

REPORT INFORMATION
  Report Type: 
  Country: None (occurrence: None)
  Receive Date: 20110715
  Receipt Date: 20110714
  Transmission Date: 20111222
  Serious: Yes (Death)
  Sender: FDA-Public Use
  Company Number: PH-B.I. PHARMACEUTICALS,INC./RIDGEFIELD-2011-CS-00580CS

PATIENT

DRUGS (2)
  1. DUAVENT [Concomitant]
  2. SPIRIVA [Suspect]

REACTIONS (1)
  - DEATH [None]
